FAERS Safety Report 4915207-4 (Version None)
Quarter: 2006Q1

REPORT INFORMATION
  Report Type: 
  Country: None (occurrence: None)
  Receive Date: 20060216
  Receipt Date: 20060216
  Transmission Date: 20060701
  Serious: Yes (Hospitalization)
  Sender: FDA-Public Use
  Company Number: None

PATIENT
  Sex: Female
  Weight: 72.5755 kg

DRUGS (10)
  1. NPH INSULIN [Suspect]
     Indication: DIABETES MELLITUS
     Dosage: 10 UNITS PRIOR TO ADMISSION
  2. PAXIL [Concomitant]
  3. AVANDIA [Concomitant]
  4. CYMBALTA [Concomitant]
  5. GLUCOPHAGE XR [Concomitant]
  6. INSULIN [Concomitant]
  7. LOPRESSOR [Concomitant]
  8. ALTACE [Concomitant]
  9. ASPIRIN [Concomitant]
  10. LIPITOR [Concomitant]

REACTIONS (4)
  - ASTHENIA [None]
  - BLOOD GLUCOSE DECREASED [None]
  - HYPERHIDROSIS [None]
  - TREMOR [None]
